FAERS Safety Report 13520770 (Version 1)
Quarter: 2017Q2

REPORT INFORMATION
  Report Type: Spontaneous
  Country: US (occurrence: US)
  Receive Date: 20170508
  Receipt Date: 20170508
  Transmission Date: 20170830
  Serious: No
  Sender: FDA-Public Use
  Company Number: US-TEVA-734061ACC

PATIENT
  Age: 56 Year
  Sex: Female
  Weight: 100 kg

DRUGS (2)
  1. FAMOTIDINE. [Suspect]
     Active Substance: FAMOTIDINE
     Indication: HYPERSENSITIVITY
     Dosage: 40 MILLIGRAM DAILY;
     Route: 048
     Dates: start: 201612, end: 201701
  2. FAMOTIDINE. [Suspect]
     Active Substance: FAMOTIDINE
     Dates: start: 201701

REACTIONS (6)
  - Dyspnoea [Recovered/Resolved]
  - Influenza [Recovered/Resolved]
  - Condition aggravated [Recovered/Resolved]
  - Extra dose administered [Unknown]
  - Oropharyngeal pain [Recovered/Resolved]
  - Hypersensitivity [Recovered/Resolved]

NARRATIVE: CASE EVENT DATE: 201612
